FAERS Safety Report 18294656 (Version 1)
Quarter: 2020Q3

REPORT INFORMATION
  Report Type: Spontaneous
  Country: US (occurrence: US)
  Receive Date: 20200922
  Receipt Date: 20200922
  Transmission Date: 20201103
  Serious: Yes (Hospitalization)
  Sender: FDA-Public Use
  Company Number: None

PATIENT
  Age: 62 Year
  Sex: Male
  Weight: 100 kg

DRUGS (22)
  1. ACYCLOVIR 400MG BID [Concomitant]
  2. CARFILZOMIB [Suspect]
     Active Substance: CARFILZOMIB
     Indication: BONE MARROW TRANSPLANT
     Route: 041
     Dates: start: 20200831, end: 20200901
  3. NIFEDIPINE 30MG QD [Concomitant]
  4. NYSTATIN 500000 UNIT QID [Concomitant]
  5. URSODIOL 300MG TID [Concomitant]
  6. BUSULFAN. [Suspect]
     Active Substance: BUSULFAN
     Indication: BONE MARROW TRANSPLANT
     Route: 041
     Dates: start: 20200826, end: 20200830
  7. LISINOPRIL 20MG QD [Concomitant]
  8. MELPHALAN. [Suspect]
     Active Substance: MELPHALAN
  9. FOLIC ACID 1MG QD [Concomitant]
  10. HYDROCHLOROTHIAZIDE 25MG QD [Concomitant]
  11. PROCHLORPERAZINE 10MG QID [Concomitant]
  12. ONDANSETRON 8MG TID [Concomitant]
  13. PANTOPRAZOLE 40MG QD [Concomitant]
  14. LEVOTHYROXINE 125MCG QD [Concomitant]
  15. SULFAMETHOXAZOLE?TRIMETHOPRIM 800?160MG 3XW [Concomitant]
  16. TRAMADOL 50MG Q6H PRN [Concomitant]
  17. CALCIUM?VITAMIN D 500?400MG QD [Concomitant]
  18. FLUCONAZOLE 200MG QD [Concomitant]
  19. LOPERAMIDE 2MG QID PRN [Concomitant]
  20. MULTIPLE VITAMIN 1TAB QD [Concomitant]
  21. OLANZAPINE 10MG QHS [Concomitant]
  22. ERGOCALCIFEROL 1.25MG Q2W [Concomitant]

REACTIONS (12)
  - Nausea [None]
  - Respiratory distress [None]
  - Septic shock [None]
  - Dyspnoea [None]
  - Diarrhoea [None]
  - Liver disorder [None]
  - Upper gastrointestinal haemorrhage [None]
  - Vomiting [None]
  - Pneumatosis intestinalis [None]
  - Decreased appetite [None]
  - Pneumonia aspiration [None]
  - Acute respiratory failure [None]

NARRATIVE: CASE EVENT DATE: 20200922
